FAERS Safety Report 10898122 (Version 1)
Quarter: 2015Q1

REPORT INFORMATION
  Report Type: Spontaneous
  Country: US (occurrence: None)
  Receive Date: 20150302
  Receipt Date: 20150302
  Transmission Date: 20150721
  Serious: Yes (Other)
  Sender: FDA-Public Use
  Company Number: None

PATIENT
  Age: 50 Year
  Sex: Female
  Weight: 71.22 kg

DRUGS (2)
  1. MIRENA [Concomitant]
     Active Substance: LEVONORGESTREL
  2. MIRENA [Suspect]
     Active Substance: LEVONORGESTREL

REACTIONS (15)
  - Rash [None]
  - Weight increased [None]
  - Nipple disorder [None]
  - Abdominal distension [None]
  - Oligomenorrhoea [None]
  - Eye swelling [None]
  - Menorrhagia [None]
  - Contusion [None]
  - Scratch [None]
  - Skin haemorrhage [None]
  - Nausea [None]
  - Pruritus [None]
  - Skin lesion [None]
  - Dizziness [None]
  - Pruritus genital [None]

NARRATIVE: CASE EVENT DATE: 20150227
